FAERS Safety Report 12351513 (Version 2)
Quarter: 2016Q2

REPORT INFORMATION
  Report Type: Spontaneous
  Country: FR (occurrence: None)
  Receive Date: 20160504
  Receipt Date: 20160518
  Transmission Date: 20160815
  Serious: Yes (Other)
  Sender: FDA-Public Use
  Company Number: RAP-001053-2016

PATIENT
  Age: 39 Year
  Sex: Female

DRUGS (3)
  1. CYST-HD (CYSTEAMINE) DELAYED-RELEASE CAPSULE [Suspect]
     Active Substance: CYSTEAMINE
     Indication: HUNTINGTON^S DISEASE
     Route: 048
  2. XENAZINE [Concomitant]
     Active Substance: TETRABENAZINE
  3. EFFEXOR [Concomitant]
     Active Substance: VENLAFAXINE HYDROCHLORIDE

REACTIONS (3)
  - Exposure during pregnancy [None]
  - Abortion induced [None]
  - Pregnancy [None]

NARRATIVE: CASE EVENT DATE: 20150916
